APPROVED DRUG PRODUCT: CLOBETASOL PROPIONATE
Active Ingredient: CLOBETASOL PROPIONATE
Strength: 0.05%
Dosage Form/Route: SOLUTION;TOPICAL
Application: A075205 | Product #001
Applicant: WOCKHARDT BIO AG
Approved: Nov 13, 1998 | RLD: No | RS: No | Type: DISCN